FAERS Safety Report 4744532-5 (Version None)
Quarter: 2005Q3

REPORT INFORMATION
  Report Type: 
  Country: None (occurrence: None)
  Receive Date: 20050811
  Receipt Date: 20050805
  Transmission Date: 20060218
  Serious: Yes (Congenital Anomaly)
  Sender: FDA-Public Use
  Company Number: FR-GDP-0512137

PATIENT
  Age: 2 Month
  Sex: Male

DRUGS (15)
  1. ERYTHROGEL [Suspect]
     Dates: start: 20040618
  2. BENZAC AC 2.5 (BENZOYL PEROXIDE GEL) [Suspect]
     Dates: start: 20040618
  3. SURGESTONE [Suspect]
     Dates: start: 20040629, end: 20040712
  4. MINOLIS [Suspect]
     Dosage: 100 MG QD TL
     Dates: start: 20040618, end: 20040717
  5. RUBOZINC [Suspect]
     Dosage: 15 MG BID TL
     Dates: start: 20040718, end: 20040822
  6. NAUTAMINE [Suspect]
     Dates: start: 20040822
  7. TRANSIPEG [Suspect]
     Dates: start: 20040628
  8. METEOSPASMYL [Suspect]
     Dates: start: 20040628
  9. NORMACOL [Suspect]
     Dates: start: 20040628
  10. MOVICOL [Suspect]
     Dates: start: 20040709
  11. TITANOREINE [Suspect]
     Dates: start: 20040709
  12. CIRKAN [Suspect]
     Dates: start: 20040709
  13. GINKOR FORT [Suspect]
     Dates: start: 20040806, end: 20040820
  14. IMODIUM [Suspect]
     Dates: start: 20040822
  15. ERCEFURYL [Suspect]
     Dates: start: 20040822

REACTIONS (5)
  - CAESAREAN SECTION [None]
  - CONGENITAL TERATOMA [None]
  - CRYPTORCHISM [None]
  - DRUG EXPOSURE DURING PREGNANCY [None]
  - TERATOMA OF TESTIS [None]
